FAERS Safety Report 7258653-9 (Version None)
Quarter: 2011Q1

REPORT INFORMATION
  Report Type: 
  Country: None (occurrence: None)
  Receive Date: 20110129
  Receipt Date: 20100502
  Transmission Date: 20110831
  Serious: No
  Sender: FDA-Public Use
  Company Number: US-ABBOTT-09P-163-0598965-00

PATIENT
  Sex: Female
  Weight: 50.848 kg

DRUGS (2)
  1. HUMIRA [Suspect]
     Indication: RHEUMATOID ARTHRITIS
     Dates: start: 20060901
  2. CIPRO [Concomitant]
     Indication: PROPHYLAXIS

REACTIONS (2)
  - MUSCULOSKELETAL PAIN [None]
  - CYSTITIS [None]
